FAERS Safety Report 23601736 (Version 1)
Quarter: 2024Q1

REPORT INFORMATION
  Report Type: Spontaneous
  Country: AU (occurrence: None)
  Receive Date: 20240306
  Receipt Date: 20240306
  Transmission Date: 20240410
  Serious: Yes (Other)
  Sender: FDA-Public Use
  Company Number: 2024A051356

PATIENT
  Age: 29 Year
  Sex: Female

DRUGS (2)
  1. IMFINZI [Suspect]
     Active Substance: DURVALUMAB
     Route: 042
  2. CISPLATIN/GEMCITABINE [Concomitant]

REACTIONS (3)
  - Metastases to peritoneum [Unknown]
  - Thrombocytopenia [Unknown]
  - Jaundice [Unknown]
